FAERS Safety Report 8245524-4 (Version None)
Quarter: 2012Q1

REPORT INFORMATION
  Report Type: 
  Country: None (occurrence: None)
  Receive Date: 20120329
  Receipt Date: 20120319
  Transmission Date: 20120608
  Serious: Yes (Disabling)
  Sender: FDA-Public Use
  Company Number: GB-RB-038495-12

PATIENT
  Age: 71 Year
  Sex: Female
  Weight: 82 kg

DRUGS (16)
  1. ADIPINE MR/NIFELEASE MR [Concomitant]
     Indication: PRODUCT USED FOR UNKNOWN INDICATION
     Dosage: DAILY DOSAGE NOT PROVIDED
     Route: 065
     Dates: start: 20111114
  2. BENDROFLUMETHIAZIDE [Concomitant]
     Indication: PRODUCT USED FOR UNKNOWN INDICATION
     Dosage: DAILY DOSAGE NOT PROVIDED
     Route: 065
     Dates: start: 20111114
  3. BECLOMETHASONE DIPROPIONATE [Concomitant]
     Indication: PRODUCT USED FOR UNKNOWN INDICATION
     Dosage: DAILY DOSAGE NOT PROVIDED
     Route: 065
     Dates: start: 20110922
  4. MORPHINE SULFATE [Concomitant]
     Indication: PRODUCT USED FOR UNKNOWN INDICATION
     Dosage: DAILY DOSAGE NOT PROVIDED
     Route: 065
     Dates: start: 20120306
  5. ESTRADERM [Concomitant]
     Indication: PRODUCT USED FOR UNKNOWN INDICATION
     Dosage: DAILY DOSAGE NOT PROVIDED
     Route: 065
     Dates: start: 20111111
  6. DOTHIEPIN HYDROCHLORIDE [Concomitant]
     Indication: PRODUCT USED FOR UNKNOWN INDICATION
     Dosage: DAILY DOSAGE NOT PROVIDED
     Route: 065
     Dates: start: 20111114
  7. MOMETASONE FUROATE [Concomitant]
     Indication: PRODUCT USED FOR UNKNOWN INDICATION
     Dosage: DAILY DOSAGE NOT PROVIDED
     Route: 065
     Dates: start: 20120307
  8. MEBEVERINE HYDROCHLORIDE [Concomitant]
     Indication: PRODUCT USED FOR UNKNOWN INDICATION
     Dosage: DAILY DOSAGE NOT PROVIDED
     Route: 065
     Dates: start: 20111114
  9. OMEPRAZOLE [Concomitant]
     Indication: PRODUCT USED FOR UNKNOWN INDICATION
     Dosage: DAILY DOSAGE NOT PROVIDED
     Route: 065
     Dates: start: 20111114
  10. BUPRENORPHINE [Suspect]
     Indication: PRODUCT USED FOR UNKNOWN INDICATION
     Dosage: DAILY DOSAGE NOT PROVIDED
     Route: 065
     Dates: start: 20120307
  11. ACETAMINOPHEN AND CODEINE PHOSPHATE [Concomitant]
     Indication: PRODUCT USED FOR UNKNOWN INDICATION
     Dosage: DAILY DOSAGE NOT PROVIDED
     Route: 065
     Dates: start: 20111114
  12. AMITRIPTYLINE HCL [Concomitant]
     Indication: PRODUCT USED FOR UNKNOWN INDICATION
     Dosage: DAILY DOSAGE NOT PROVIDED
     Route: 065
     Dates: start: 20111114
  13. LEVOTHYROXINE SODIUM [Concomitant]
     Indication: PRODUCT USED FOR UNKNOWN INDICATION
     Dosage: DAILY DOSAGE NOT PROVIDED
     Route: 065
     Dates: start: 20111114
  14. CAPTOPRIL [Concomitant]
     Indication: PRODUCT USED FOR UNKNOWN INDICATION
     Dosage: DAILY DOSAGE NOT PROVIDED
     Route: 065
     Dates: start: 20111114
  15. FENTANYL [Concomitant]
     Indication: PRODUCT USED FOR UNKNOWN INDICATION
     Dosage: DAILY DOSAGE NOT PROVIDED
     Route: 065
     Dates: start: 20120307
  16. SIMVASTATIN [Concomitant]
     Indication: PRODUCT USED FOR UNKNOWN INDICATION
     Dosage: DAILY DOSAGE NOT PROVIDED
     Route: 065
     Dates: start: 20111114

REACTIONS (1)
  - APPLICATION SITE DERMATITIS [None]
